FAERS Safety Report 13285039 (Version 1)
Quarter: 2017Q1

REPORT INFORMATION
  Report Type: Spontaneous
  Country: FR (occurrence: FR)
  Receive Date: 20170301
  Receipt Date: 20170301
  Transmission Date: 20170428
  Serious: Yes (Hospitalization)
  Sender: FDA-Public Use
  Company Number: FR-MYLANLABS-2017M1011927

PATIENT

DRUGS (2)
  1. CAPTOPRIL. [Suspect]
     Active Substance: CAPTOPRIL
     Indication: CARDIAC DISORDER
     Dosage: CAPTOPRIL WITH FUROSEMIDE (10MG/10ML) AT A TITRATION OF 1ML TWICE A DAY
     Route: 065
  2. FUROSEMIDE. [Suspect]
     Active Substance: FUROSEMIDE
     Indication: CARDIAC DISORDER
     Dosage: CAPTOPRIL WITH FUROSEMIDE (10MG/10ML) AT A TITRATION OF 1ML TWICE A DAY
     Route: 065

REACTIONS (2)
  - Drug administration error [Recovered/Resolved]
  - Dehydration [Recovered/Resolved]
